FAERS Safety Report 7354297-9 (Version None)
Quarter: 2011Q1

REPORT INFORMATION
  Report Type: 
  Country: None (occurrence: None)
  Receive Date: 20110316
  Receipt Date: 20091117
  Transmission Date: 20110831
  Serious: No
  Sender: FDA-Public Use
  Company Number: 2009BI037997

PATIENT
  Age: 29 Year
  Sex: Male

DRUGS (1)
  1. TYSABRI [Suspect]
     Indication: MULTIPLE SCLEROSIS
     Route: 042
     Dates: start: 20091112

REACTIONS (4)
  - HEADACHE [None]
  - INITIAL INSOMNIA [None]
  - ARTHRALGIA [None]
  - TREMOR [None]
